FAERS Safety Report 4964581-1 (Version None)
Quarter: 2006Q2

REPORT INFORMATION
  Report Type: 
  Country: None (occurrence: None)
  Receive Date: 20060406
  Receipt Date: 20060119
  Transmission Date: 20061013
  Serious: Yes (Other)
  Sender: FDA-Public Use
  Company Number: US-ROCHE-433424

PATIENT
  Age: 64 Year
  Sex: Female
  Weight: 100.2 kg

DRUGS (8)
  1. BONIVA [Suspect]
     Indication: DRUG USE FOR UNKNOWN INDICATION
     Route: 048
     Dates: start: 20051215
  2. PREMARIN [Concomitant]
  3. PROVERA [Concomitant]
  4. KLONOPIN [Concomitant]
     Dosage: 0.5MG AT BED TIME.
  5. ZESTORETIC [Concomitant]
     Dosage: STRENGTH: 10/12.5 MG
     Route: 048
  6. TOPROL-XL [Concomitant]
     Dosage: 25 MG EVERY MORNING.
     Route: 048
  7. ZOMIG [Concomitant]
     Dosage: 5.0 MG PER DAY WHEN REQUIRED.
  8. LEVOXYL [Concomitant]
     Route: 048

REACTIONS (8)
  - ABDOMINAL PAIN [None]
  - DIARRHOEA [None]
  - HYPOTHYROIDISM [None]
  - NAUSEA [None]
  - PAIN [None]
  - PYREXIA [None]
  - TINNITUS [None]
  - VOMITING [None]
